FAERS Safety Report 24293785 (Version 1)
Quarter: 2024Q3

REPORT INFORMATION
  Report Type: Spontaneous
  Country: US (occurrence: None)
  Receive Date: 20240906
  Receipt Date: 20240906
  Transmission Date: 20241017
  Serious: No
  Sender: DOMPE FARMACEUTICI
  Company Number: US-FARMAPROD-202308-202402-0619

PATIENT
  Sex: Female

DRUGS (24)
  1. OXERVATE [Suspect]
     Active Substance: CENEGERMIN-BKBJ
     Indication: Neurotrophic keratopathy
     Route: 047
     Dates: start: 20240131
  2. OXERVATE [Suspect]
     Active Substance: CENEGERMIN-BKBJ
     Indication: Hypoaesthesia eye
  3. LEVOTHYROXINE SODIUM [Concomitant]
     Active Substance: LEVOTHYROXINE SODIUM
  4. LISINOPRIL [Concomitant]
     Active Substance: LISINOPRIL
  5. CEFUROXIME [Concomitant]
     Active Substance: CEFUROXIME
  6. MOXIFLOXACIN [Concomitant]
     Active Substance: MOXIFLOXACIN
  7. PREDNISONE [Concomitant]
     Active Substance: PREDNISONE
     Dosage: TABLET, DOSE PACK
  8. PREDNISONE [Concomitant]
     Active Substance: PREDNISONE
  9. SYSTANE (HYPROMELLOSE 2910 (4000 MPA.S)) [Concomitant]
     Active Substance: HYPROMELLOSE 2910 (4000 MPA.S)
     Dosage: 0.3 %-0.4% DROPERETTE
  10. NURTEC ODT [Concomitant]
     Active Substance: RIMEGEPANT SULFATE
     Dosage: TABLET,DISINTEGRATING
  11. BOTOX [Concomitant]
     Active Substance: ONABOTULINUMTOXINA
     Dosage: UNIT VIAL
  12. PROBIOTICS NOS [Concomitant]
     Active Substance: PROBIOTICS NOS
     Dosage: 10 BILLION OF CELLS
  13. CRANBERRY [Concomitant]
     Active Substance: CRANBERRY
  14. IODINE [Concomitant]
     Active Substance: IODINE
     Dosage: CRYSTALS
  15. THYROID [Concomitant]
     Active Substance: LEVOTHYROXINE\LIOTHYRONINE
  16. UPNEEQ [Concomitant]
     Active Substance: OXYMETAZOLINE HYDROCHLORIDE
  17. METOPROLOL SUCCINATE [Concomitant]
     Active Substance: METOPROLOL SUCCINATE
     Dosage: EXTENDED RELEASE FOR 24 HOURS
  18. KELP [Concomitant]
     Active Substance: KELP
  19. NYSTATIN [Concomitant]
     Active Substance: NYSTATIN
     Dosage: 100000/G
  20. DESONIDE [Concomitant]
     Active Substance: DESONIDE
  21. CEPHALEXIN [Concomitant]
     Active Substance: CEPHALEXIN
  22. PANTOPRAZOLE SODIUM [Concomitant]
     Active Substance: PANTOPRAZOLE SODIUM
  23. VITAMIN C [Concomitant]
     Active Substance: ASCORBIC ACID
  24. TIMOLOL MALEATE [Concomitant]
     Active Substance: TIMOLOL MALEATE

REACTIONS (2)
  - Eye pain [Unknown]
  - Eye irritation [Unknown]
